FAERS Safety Report 8122452-6 (Version None)
Quarter: 2012Q1

REPORT INFORMATION
  Report Type: 
  Country: None (occurrence: None)
  Receive Date: 20120208
  Receipt Date: 20120127
  Transmission Date: 20120608
  Serious: Yes (Hospitalization)
  Sender: FDA-Public Use
  Company Number: JP-ELI_LILLY_AND_COMPANY-JP201110000430

PATIENT
  Age: 85 Year
  Sex: Female

DRUGS (1)
  1. FORTEO [Suspect]
     Dosage: UNK
     Route: 058
     Dates: end: 20120111

REACTIONS (8)
  - HAEMOPTYSIS [None]
  - LUNG NEOPLASM MALIGNANT [None]
  - NAUSEA [None]
  - INCORRECT STORAGE OF DRUG [None]
  - INJECTION SITE HAEMATOMA [None]
  - HERPES VIRUS INFECTION [None]
  - DECREASED APPETITE [None]
  - POOR QUALITY DRUG ADMINISTERED [None]
